FAERS Safety Report 9914666 (Version 1)
Quarter: 2014Q1

REPORT INFORMATION
  Report Type: Spontaneous
  Country: IT (occurrence: IT)
  Receive Date: 20140220
  Receipt Date: 20140220
  Transmission Date: 20141002
  Serious: Yes (Other)
  Sender: FDA-Public Use
  Company Number: IT-ELI_LILLY_AND_COMPANY-IT201402003661

PATIENT
  Age: 60 Year
  Sex: Female

DRUGS (6)
  1. OLANZAPINE [Suspect]
     Indication: DEPRESSION
     Dosage: 2.5 MG, QD
     Route: 048
     Dates: start: 20140116, end: 20140120
  2. LAROXYL [Suspect]
     Indication: DEPRESSION
     Dosage: 5 GTT, QD
     Route: 048
     Dates: start: 20140116, end: 20140120
  3. DAPAROX [Concomitant]
     Indication: ANXIETY
     Dosage: 1 DF, UNKNOWN
     Route: 065
     Dates: start: 201311, end: 20140116
  4. DAPAROX [Concomitant]
     Indication: AGITATION
  5. XANAX [Concomitant]
     Indication: ANXIETY
     Dosage: 1 DF, UNKNOWN
     Route: 065
     Dates: start: 201311, end: 20140116
  6. XANAX [Concomitant]
     Indication: AGITATION

REACTIONS (5)
  - Dizziness [Recovered/Resolved]
  - Paraesthesia [Recovered/Resolved]
  - Drug hypersensitivity [Recovered/Resolved]
  - Confusional state [Unknown]
  - Off label use [Recovered/Resolved]
